FAERS Safety Report 5310541-0 (Version None)
Quarter: 2007Q2

REPORT INFORMATION
  Report Type: 
  Country: None (occurrence: None)
  Receive Date: 20070427
  Receipt Date: 20070420
  Transmission Date: 20071010
  Serious: Yes (Disabling)
  Sender: FDA-Public Use
  Company Number: US-MERCK-0703USA04006

PATIENT
  Age: 62 Year
  Sex: Female
  Weight: 54 kg

DRUGS (6)
  1. FOSAMAX [Suspect]
     Indication: OSTEOPENIA
     Route: 048
     Dates: start: 20000101, end: 20070310
  2. FOSAMAX [Suspect]
     Route: 048
     Dates: start: 19950101, end: 20000101
  3. NADOLOL [Concomitant]
     Route: 065
  4. ZOCOR [Concomitant]
     Route: 065
  5. CALCIUM (UNSPECIFIED) [Concomitant]
     Route: 065
  6. VITAMIN D (UNSPECIFIED) [Concomitant]
     Route: 065

REACTIONS (3)
  - COUGH [None]
  - IMPAIRED HEALING [None]
  - RIB FRACTURE [None]
